FAERS Safety Report 23677576 (Version 1)
Quarter: 2024Q1

REPORT INFORMATION
  Report Type: Spontaneous
  Country: NL (occurrence: NL)
  Receive Date: 20240327
  Receipt Date: 20240327
  Transmission Date: 20240409
  Serious: Yes (Hospitalization, Other)
  Sender: FDA-Public Use
  Company Number: NL-SA-2024SA081001

PATIENT
  Age: 67 Year
  Sex: Female

DRUGS (12)
  1. CYCLOPHOSPHAMIDE [Suspect]
     Active Substance: CYCLOPHOSPHAMIDE
     Indication: Adrenal gland cancer metastatic
     Dosage: 60 MG/KG
     Route: 065
  2. CYCLOPHOSPHAMIDE [Suspect]
     Active Substance: CYCLOPHOSPHAMIDE
     Indication: Metastases to central nervous system
  3. CYCLOPHOSPHAMIDE [Suspect]
     Active Substance: CYCLOPHOSPHAMIDE
     Indication: Non-small cell lung cancer metastatic
  4. FLUDARABINE PHOSPHATE [Suspect]
     Active Substance: FLUDARABINE PHOSPHATE
     Indication: Adrenal gland cancer metastatic
     Dosage: 25 MG/M2
     Route: 065
  5. FLUDARABINE PHOSPHATE [Suspect]
     Active Substance: FLUDARABINE PHOSPHATE
     Indication: Metastases to central nervous system
  6. FLUDARABINE PHOSPHATE [Suspect]
     Active Substance: FLUDARABINE PHOSPHATE
     Indication: Non-small cell lung cancer metastatic
  7. ALDESLEUKIN [Suspect]
     Active Substance: ALDESLEUKIN
     Indication: Non-small cell lung cancer metastatic
     Dosage: 600000 IU/KG (HIGH DOSE)
     Route: 042
  8. ALDESLEUKIN [Suspect]
     Active Substance: ALDESLEUKIN
     Indication: Adrenal gland cancer metastatic
  9. ALDESLEUKIN [Suspect]
     Active Substance: ALDESLEUKIN
     Indication: Metastases to central nervous system
  10. LYMPHOCYTES [Suspect]
     Active Substance: LYMPHOCYTES
     Indication: Non-small cell lung cancer metastatic
     Route: 042
  11. LYMPHOCYTES [Suspect]
     Active Substance: LYMPHOCYTES
     Indication: Adrenal gland cancer metastatic
  12. LYMPHOCYTES [Suspect]
     Active Substance: LYMPHOCYTES
     Indication: Metastases to central nervous system

REACTIONS (11)
  - Oedema peripheral [Recovered/Resolved]
  - Tachycardia [Recovered/Resolved]
  - Chest discomfort [Recovered/Resolved]
  - Hypoxia [Recovered/Resolved]
  - Hypertension [Recovered/Resolved]
  - Capillary leak syndrome [Recovered/Resolved]
  - Pulmonary oedema [Recovered/Resolved]
  - Pulmonary congestion [Recovered/Resolved]
  - Tachypnoea [Recovered/Resolved]
  - Dyspnoea [Recovered/Resolved]
  - Off label use [Recovered/Resolved]
